FAERS Safety Report 16119151 (Version 1)
Quarter: 2019Q1

REPORT INFORMATION
  Report Type: Spontaneous
  Country: US (occurrence: US)
  Receive Date: 20190326
  Receipt Date: 20190326
  Transmission Date: 20190418
  Serious: Yes (Other)
  Sender: FDA-Public Use
  Company Number: US-OTSUKA-2018_034059

PATIENT
  Age: 30 Year
  Sex: Male

DRUGS (3)
  1. ABILIFY MAINTENA [Suspect]
     Active Substance: ARIPIPRAZOLE
     Indication: SCHIZOPHRENIA
     Dosage: 400 MG, ONCE MONTHLY
     Route: 065
     Dates: start: 20150730
  2. INVEGA [Suspect]
     Active Substance: PALIPERIDONE
     Indication: PRODUCT USED FOR UNKNOWN INDICATION
     Dosage: 156 MG, UNK (FOR 4 WEEKS)
     Route: 030
     Dates: start: 201608, end: 2018
  3. INVEGA [Suspect]
     Active Substance: PALIPERIDONE
     Dosage: 234 MG, UNK
     Route: 030
     Dates: start: 20160810, end: 201608

REACTIONS (2)
  - Cerebrovascular accident [Unknown]
  - Vertebral artery dissection [Unknown]

NARRATIVE: CASE EVENT DATE: 2018
